FAERS Safety Report 8591722-X (Version None)
Quarter: 2012Q3

REPORT INFORMATION
  Report Type: 
  Country: None (occurrence: None)
  Receive Date: 20120814
  Receipt Date: 20120808
  Transmission Date: 20120928
  Serious: Yes (Other)
  Sender: FDA-Public Use
  Company Number: PHHY2012CA067648

PATIENT
  Sex: Female

DRUGS (2)
  1. ZOLEDRONOC ACID [Suspect]
     Route: 042
     Dates: start: 20111012
  2. ZOLEDRONOC ACID [Suspect]
     Indication: OSTEOPOROSIS
     Route: 042
     Dates: start: 20091014

REACTIONS (4)
  - DISEASE PROGRESSION [None]
  - ENTHESOPATHY [None]
  - STRESS FRACTURE [None]
  - INTERVERTEBRAL DISC DEGENERATION [None]
